FAERS Safety Report 7621247-7 (Version None)
Quarter: 2011Q3

REPORT INFORMATION
  Report Type: 
  Country: None (occurrence: None)
  Receive Date: 20110719
  Receipt Date: 20110711
  Transmission Date: 20111222
  Serious: Yes (Hospitalization, Congenital Anomaly)
  Sender: FDA-Public Use
  Company Number: JP-PFIZER INC-2011153393

PATIENT

DRUGS (1)
  1. HYDROCORTISONE [Suspect]
     Dosage: SINCE 30 WEEKS' GESTATION
     Route: 064

REACTIONS (3)
  - CARDIAC DISORDER [None]
  - MATERNAL EXPOSURE DURING PREGNANCY [None]
  - DUCTUS ARTERIOSUS STENOSIS FOETAL [None]
